FAERS Safety Report 24920544 (Version 1)
Quarter: 2025Q1

REPORT INFORMATION
  Report Type: Report from Study
  Country: CA (occurrence: CA)
  Receive Date: 20250204
  Receipt Date: 20250204
  Transmission Date: 20250408
  Serious: No
  Sender: EXELIXIS
  Company Number: CA-IPSEN Group, Research and Development-2024-02694

PATIENT
  Sex: Male

DRUGS (12)
  1. CABOMETYX [Suspect]
     Active Substance: CABOZANTINIB S-MALATE
     Indication: Renal cell carcinoma
     Dosage: 60 MG, QD
     Route: 048
     Dates: start: 20230722
  2. PANTOPRAZOLE [Concomitant]
     Active Substance: PANTOPRAZOLE
  3. SUNITINIB [Concomitant]
     Active Substance: SUNITINIB
     Dosage: 50 MG, QD
     Route: 048
  4. SYNTHROID [Concomitant]
     Active Substance: LEVOTHYROXINE SODIUM
  5. BISOPROLOL [Concomitant]
     Active Substance: BISOPROLOL
  6. IRON [Concomitant]
     Active Substance: IRON
  7. AMLODIPINE [Concomitant]
     Active Substance: AMLODIPINE BESYLATE
  8. DEXAMETHASONE [Concomitant]
     Active Substance: DEXAMETHASONE
     Dosage: 2 MG, BID
  9. DEXAMETHASONE [Concomitant]
     Active Substance: DEXAMETHASONE
  10. TYLENOL [Concomitant]
     Active Substance: ACETAMINOPHEN
  11. PREGABALIN [Concomitant]
     Active Substance: PREGABALIN
     Dosage: UNK, BID
  12. DILAUDID [Concomitant]
     Active Substance: HYDROMORPHONE HYDROCHLORIDE

REACTIONS (2)
  - Nausea [Unknown]
  - Cholelithiasis [Unknown]
